FAERS Safety Report 11176383 (Version 3)
Quarter: 2015Q3

REPORT INFORMATION
  Report Type: Report from Study
  Country: NL (occurrence: NL)
  Receive Date: 20150610
  Receipt Date: 20150729
  Transmission Date: 20151125
  Serious: Yes (Death)
  Sender: FDA-Public Use
  Company Number: NL-ROCHE-1495480

PATIENT
  Age: 47 Year
  Sex: Female
  Weight: 79 kg

DRUGS (4)
  1. BEVACIZUMAB [Suspect]
     Active Substance: BEVACIZUMAB
     Indication: GLIOMA
     Dosage: LAST DOSE PRIOR TO SAE ON 13/NOV/2014 WAS 840 MG.
     Route: 042
     Dates: start: 20140410
  2. DEXAMETHASONE (ORAL) [Concomitant]
     Active Substance: DEXAMETHASONE
     Indication: BRAIN OEDEMA
     Dosage: 1 X 1 MG
     Route: 048
     Dates: start: 20141013
  3. LEVETIRACTAM [Concomitant]
     Active Substance: LEVETIRACETAM
     Indication: SEIZURE
     Dosage: 2 X 1250 MG
     Route: 048
     Dates: start: 2011
  4. TEMOZOLOMIDE. [Suspect]
     Active Substance: TEMOZOLOMIDE
     Indication: GLIOMA
     Dosage: DAY 1 TO 5, 150 TO 200 MG/M2, EVERY 4 WEEKS UPTO 12 CYCLES.
     Route: 048
     Dates: end: 20140630

REACTIONS (1)
  - Left ventricular failure [Fatal]

NARRATIVE: CASE EVENT DATE: 20141120
